FAERS Safety Report 6745001-3 (Version None)
Quarter: 2010Q2

REPORT INFORMATION
  Report Type: 
  Country: None (occurrence: None)
  Receive Date: 20100527
  Receipt Date: 20100519
  Transmission Date: 20101027
  Serious: Yes (Other)
  Sender: FDA-Public Use
  Company Number: JP-ROCHE-679371

PATIENT
  Sex: Female

DRUGS (20)
  1. TOCILIZUMAB [Suspect]
     Indication: RHEUMATOID ARTHRITIS
     Route: 041
     Dates: start: 20090903, end: 20090903
  2. TOCILIZUMAB [Suspect]
     Route: 041
     Dates: start: 20091006, end: 20091006
  3. TOCILIZUMAB [Suspect]
     Route: 041
     Dates: start: 20091111, end: 20091111
  4. TOCILIZUMAB [Suspect]
     Route: 041
     Dates: start: 20100113, end: 20100113
  5. TOCILIZUMAB [Suspect]
     Route: 041
     Dates: start: 20100222, end: 20100222
  6. TOCILIZUMAB [Suspect]
     Route: 041
     Dates: start: 20100315
  7. RHEUMATREX [Concomitant]
     Route: 048
  8. METHOTREXATE [Concomitant]
     Dosage: DOSE FORM: PERORAL AGENT
     Route: 048
  9. PREDNISOLONE [Concomitant]
     Dosage: DOSE FORM: PERORAL AGENT
     Route: 048
  10. ISCOTIN [Concomitant]
     Route: 048
     Dates: start: 20090805
  11. MAGNESIUM OXIDE [Concomitant]
     Route: 048
     Dates: start: 20091005
  12. BAYLOTENSIN [Concomitant]
     Route: 048
  13. PURSENNID [Concomitant]
     Route: 048
  14. TAKEPRON [Concomitant]
     Route: 048
  15. DEPAS [Concomitant]
     Dosage: DOSE FORM: PERORAL AGENT
     Route: 048
  16. DORAL [Concomitant]
     Route: 048
  17. HALCION [Concomitant]
     Route: 048
  18. COTRIM [Concomitant]
     Route: 048
  19. FOLIAMIN [Concomitant]
     Dosage: DOSE FORM: PERORAL AGENT
     Route: 048
  20. MAGLAX [Concomitant]
     Dosage: DOSE FORM: MINUTE GRANULE
     Route: 048
     Dates: start: 20091006

REACTIONS (2)
  - CEREBRAL HAEMORRHAGE [None]
  - HYPERCHOLESTEROLAEMIA [None]
